FAERS Safety Report 11625794 (Version 5)
Quarter: 2016Q4

REPORT INFORMATION
  Report Type: Spontaneous
  Country: US (occurrence: US)
  Receive Date: 20151013
  Receipt Date: 20161024
  Transmission Date: 20170206
  Serious: Yes (Other)
  Sender: FDA-Public Use
  Company Number: US-PFIZER INC-2015332826

PATIENT
  Age: 71 Year
  Sex: Female

DRUGS (4)
  1. IBRANCE [Suspect]
     Active Substance: PALBOCICLIB
     Dosage: 125 MG, UNK
     Dates: start: 20151001
  2. IBRANCE [Suspect]
     Active Substance: PALBOCICLIB
     Indication: METASTASES TO BONE MARROW
     Dosage: 100 MG, CYCLIC (21 OUT OF 28 DAYS)
     Dates: start: 20150929
  3. IBRANCE [Suspect]
     Active Substance: PALBOCICLIB
     Dosage: 100 MG, UNK
     Dates: start: 201509
  4. FASLODEX [Suspect]
     Active Substance: FULVESTRANT
     Dosage: UNK
     Dates: start: 201509

REACTIONS (13)
  - Cervical spinal stenosis [Unknown]
  - Migraine [Unknown]
  - Product use issue [Unknown]
  - White blood cell count decreased [Unknown]
  - Nerve compression [Unknown]
  - Asthenia [Unknown]
  - Diarrhoea [Unknown]
  - Bronchitis [Recovered/Resolved]
  - Haemoglobin decreased [Unknown]
  - Bursitis [Unknown]
  - Blood count abnormal [Unknown]
  - Fatigue [Unknown]
  - Alopecia [Unknown]

NARRATIVE: CASE EVENT DATE: 20150930
